FAERS Safety Report 23089338 (Version 1)
Quarter: 2023Q4

REPORT INFORMATION
  Report Type: Spontaneous
  Country: DE (occurrence: DE)
  Receive Date: 20231020
  Receipt Date: 20231020
  Transmission Date: 20240110
  Serious: Yes (Congenital Anomaly, Other)
  Sender: FDA-Public Use
  Company Number: None

PATIENT
  Age: 1 Day
  Sex: Female
  Weight: 3 kg

DRUGS (10)
  1. CETIRIZINE [Suspect]
     Active Substance: CETIRIZINE HYDROCHLORIDE
     Indication: Product used for unknown indication
     Dosage: MOTHER DOSE:15 MG/D 15 MG/D; REDUCED TO 10 MG/D.
     Route: 064
  2. MECLIZINE HYDROCHLORIDE [Suspect]
     Active Substance: MECLIZINE HYDROCHLORIDE
     Indication: Product used for unknown indication
     Dosage: MOTHER^S DOSE: 50 MG/D-2X 25 MG DAILY 2 SEPARATED DOSES
     Route: 064
  3. DOXYLAMINE SUCCINATE\PYRIDOXINE HYDROCHLORIDE [Suspect]
     Active Substance: DOXYLAMINE SUCCINATE\PYRIDOXINE HYDROCHLORIDE
     Indication: Product used for unknown indication
     Dosage: MOTHER^S DOSE: 20 MG/D-20 MG/D / 2X 10MG/D 2 SEPARATED DOSES
     Route: 064
  4. DEXPANTHENOL [Concomitant]
     Active Substance: DEXPANTHENOL
     Indication: Product used for unknown indication
     Dosage: UNKNOWN
     Route: 064
  5. BRAUNOVIDON [Concomitant]
     Indication: Product used for unknown indication
     Dosage: MOTHER^S DOSE: UNKNOWN, 10/05/2022 TO 30/09/2022 FOR 143 DAYS
     Route: 064
  6. LEVOTHYROXINE SODIUM [Concomitant]
     Active Substance: LEVOTHYROXINE SODIUM
     Indication: Product used for unknown indication
     Dosage: MOTHER^S DOSE: 12.5 [G/D ] FROM 10/05/2022 TO 19/02/2023 TO 285 DAYS
     Route: 064
  7. OCTENIDINE\PHENOXYETHANOL [Concomitant]
     Active Substance: OCTENIDINE\PHENOXYETHANOL
     Indication: Product used for unknown indication
     Dosage: UNKNOWN
     Route: 064
  8. ETHACRIDINE LACTATE [Concomitant]
     Active Substance: ETHACRIDINE LACTATE
     Indication: Product used for unknown indication
     Dosage: MOTHER^S DOSE: UNKNOWN FROM 10/05/2022 TO 10/05/2022 FOR 143 DAYS
     Route: 064
  9. Silomat DMP Sirup gegen Reizhusten [Concomitant]
     Indication: Product used for unknown indication
     Dosage: UNKNOWN
     Route: 064
  10. vitamin b12 depot [Concomitant]
     Indication: Product used for unknown indication
     Dosage: MOTHER^S DOSE: 1000 [G/D ]/ ONE SINGLE DOSE, 1000 G FROM 16/06/2022 TO 16/06/2022 FOR 1 DAY
     Route: 064

REACTIONS (3)
  - Ventricular septal defect [Not Recovered/Not Resolved]
  - Macrocephaly [Unknown]
  - Foetal exposure during pregnancy [Unknown]

NARRATIVE: CASE EVENT DATE: 20230201
